FAERS Safety Report 9249903 (Version 3)
Quarter: 2013Q2

REPORT INFORMATION
  Report Type: Spontaneous
  Country: US (occurrence: US)
  Receive Date: 20130423
  Receipt Date: 20130523
  Transmission Date: 20140414
  Serious: Yes (Other)
  Sender: FDA-Public Use
  Company Number: US-ROXANE LABORATORIES, INC.-2013-RO-00523RO

PATIENT
  Sex: Female

DRUGS (5)
  1. PREDNISONE [Suspect]
     Indication: ASTHMA
     Dosage: 10 MG
     Route: 048
     Dates: start: 20130410, end: 20130411
  2. PREDNISONE [Suspect]
     Dosage: 20 MG
     Route: 048
     Dates: start: 20130412, end: 20130412
  3. SINGULAIR [Concomitant]
  4. ADVAIR [Concomitant]
  5. NASONEX [Concomitant]

REACTIONS (3)
  - Dyspnoea [Recovered/Resolved]
  - Drug ineffective [Recovered/Resolved]
  - Product quality issue [Recovered/Resolved]
